FAERS Safety Report 12889835 (Version 1)
Quarter: 2016Q4

REPORT INFORMATION
  Report Type: Spontaneous
  Country: US (occurrence: US)
  Receive Date: 20161027
  Receipt Date: 20161027
  Transmission Date: 20170207
  Serious: No
  Sender: FDA-Public Use
  Company Number: US-PERRIGO-15US013482

PATIENT
  Sex: Female

DRUGS (2)
  1. ALL OTHER THERAPEUTIC PRODUCTS [Suspect]
     Active Substance: UNSPECIFIED INGREDIENT
     Indication: INSOMNIA
     Dosage: UNKNOWN, UNKNOWN
     Route: 048
  2. DOXYLAMINE SUCCINATE. [Suspect]
     Active Substance: DOXYLAMINE SUCCINATE
     Indication: INSOMNIA
     Dosage: 25 MG TO 1.5 TABLETS, PRN AT BEDTIME
     Route: 048
     Dates: start: 201511, end: 20151226

REACTIONS (4)
  - Incorrect dose administered [Recovered/Resolved]
  - Oral discomfort [Recovering/Resolving]
  - Wrong technique in product usage process [Recovered/Resolved]
  - Dry throat [Recovering/Resolving]

NARRATIVE: CASE EVENT DATE: 201511
